FAERS Safety Report 5253906-8 (Version None)
Quarter: 2007Q1

REPORT INFORMATION
  Report Type: 
  Country: None (occurrence: None)
  Receive Date: 20070222
  Receipt Date: 20070222
  Transmission Date: 20070707
  Serious: Yes (Hospitalization)
  Sender: FDA-Public Use
  Company Number: None

PATIENT
  Sex: Female
  Weight: 68 kg

DRUGS (1)
  1. HUMIRA [Suspect]
     Dosage: 40MG Q 10 DAYS SQ
     Route: 058
     Dates: start: 20060301, end: 20070101

REACTIONS (2)
  - PNEUMONIA [None]
  - SEPSIS [None]
